FAERS Safety Report 4281534-X (Version None)
Quarter: 2004Q1

REPORT INFORMATION
  Report Type: 
  Country: None (occurrence: None)
  Receive Date: 20040112
  Receipt Date: 20030924
  Transmission Date: 20041129
  Serious: Yes (Other)
  Sender: FDA-Public Use
  Company Number: 344457

PATIENT
  Age: 40 Year
  Sex: Male
  Weight: 70.3 kg

DRUGS (5)
  1. FUZEON [Suspect]
     Indication: HIV INFECTION
     Dosage: 90MG 2 PER DAY SUBCUTANEOUS
     Route: 058
     Dates: start: 20030703
  2. HIVID CONTINUING (ZALCITABINE) [Concomitant]
  3. VIREAD CONTINUING  (TENOFOVIR) [Concomitant]
  4. EPIVIR CONTINUING  (LAMIVUDINE) [Concomitant]
  5. ZITHROMAX CONTINUING  (AZITHROMYCIN) [Concomitant]

REACTIONS (13)
  - COUGH [None]
  - DYSKINESIA [None]
  - INJECTION SITE DISCOMFORT [None]
  - INJECTION SITE JOINT PAIN [None]
  - INJECTION SITE NODULE [None]
  - INJECTION SITE PAIN [None]
  - INJECTION SITE REACTION [None]
  - MUSCLE CRAMP [None]
  - MUSCLE SPASMS [None]
  - PAIN IN EXTREMITY [None]
  - PRURITUS [None]
  - RASH GENERALISED [None]
  - TIC [None]
